FAERS Safety Report 5123852-9 (Version None)
Quarter: 2006Q4

REPORT INFORMATION
  Report Type: 
  Country: None (occurrence: None)
  Receive Date: 20061010
  Receipt Date: 20060922
  Transmission Date: 20070319
  Serious: Yes (Hospitalization)
  Sender: FDA-Public Use
  Company Number: JP-JPN-A200603811

PATIENT
  Age: 71 Year
  Sex: Male

DRUGS (7)
  1. PAXIL [Suspect]
     Indication: DEPRESSION
     Dosage: 20MG PER DAY
     Route: 048
     Dates: start: 20060620, end: 20060621
  2. HOKUNALIN [Suspect]
     Route: 062
  3. ALESION [Concomitant]
     Route: 048
  4. MUCOSOLVAN [Concomitant]
     Indication: PRODUCTIVE COUGH
     Dosage: 45MG PER DAY
     Route: 048
     Dates: start: 20060509, end: 20060704
  5. LENDORMIN [Concomitant]
     Indication: SLEEP DISORDER
     Dosage: .25MG PER DAY
     Route: 048
     Dates: start: 20060412
  6. GASMOTIN [Concomitant]
     Indication: PROPHYLAXIS OF NAUSEA AND VOMITING
     Dosage: 5MG PER DAY
     Route: 048
     Dates: start: 20060621, end: 20060621
  7. MOSAPRIDE CITRATE [Concomitant]

REACTIONS (10)
  - ANOREXIA [None]
  - BLOOD CREATINE PHOSPHOKINASE INCREASED [None]
  - CHILLS [None]
  - COLD SWEAT [None]
  - DECREASED APPETITE [None]
  - DRUG INTERACTION [None]
  - HYPERVENTILATION [None]
  - IMMOBILE [None]
  - NAUSEA [None]
  - VOMITING [None]
